FAERS Safety Report 13685610 (Version 1)
Quarter: 2017Q2

REPORT INFORMATION
  Report Type: Spontaneous
  Country: US (occurrence: US)
  Receive Date: 20170623
  Receipt Date: 20170623
  Transmission Date: 20170830
  Serious: No
  Sender: FDA-Public Use
  Company Number: US-TARO-2016TAR00617

PATIENT
  Age: 9 Year
  Sex: Female
  Weight: 23.13 kg

DRUGS (3)
  1. CETIRIZINE HCL [Suspect]
     Active Substance: CETIRIZINE HYDROCHLORIDE
     Indication: MULTIPLE ALLERGIES
     Dosage: 7.5 ML, 1X/DAY
     Route: 048
     Dates: start: 20160701, end: 20160710
  2. MULTIVITAMIN [Concomitant]
     Active Substance: VITAMINS
  3. CETIRIZINE HCL [Suspect]
     Active Substance: CETIRIZINE HYDROCHLORIDE
     Dosage: 7.5 UNK, UNK
     Route: 048
     Dates: start: 20160711

REACTIONS (3)
  - Viral infection [Recovering/Resolving]
  - Product contamination physical [Recovered/Resolved]
  - Cough [Recovering/Resolving]

NARRATIVE: CASE EVENT DATE: 20160704
